FAERS Safety Report 6032405-X (Version None)
Quarter: 2009Q1

REPORT INFORMATION
  Report Type: 
  Country: None (occurrence: None)
  Receive Date: 20090109
  Receipt Date: 20081227
  Transmission Date: 20090719
  Serious: Yes (Hospitalization, Other)
  Sender: FDA-Public Use
  Company Number: US-PFIZER INC-2007011711

PATIENT
  Age: 60 Year
  Sex: Female

DRUGS (13)
  1. ZOLOFT [Suspect]
     Dates: end: 20060101
  2. CHANTIX [Suspect]
     Indication: SMOKING CESSATION THERAPY
     Dates: end: 20060101
  3. MICRONASE TAB [Suspect]
  4. XANAX [Suspect]
  5. GLUCOVANCE [Suspect]
     Dates: start: 20060201
  6. WELLBUTRIN [Suspect]
     Dates: end: 20060101
  7. SEROQUEL [Concomitant]
  8. METFORMIN HCL [Suspect]
  9. WELLBUTRIN [Concomitant]
  10. BYETTA [Concomitant]
     Dates: end: 20080101
  11. ANTI-SMOKING AGENTS [Concomitant]
  12. SYNTHROID [Concomitant]
  13. ZYBAN [Concomitant]

REACTIONS (19)
  - ABDOMINAL DISCOMFORT [None]
  - ARTHRITIS [None]
  - DIABETES MELLITUS [None]
  - DRUG DEPENDENCE [None]
  - FALL [None]
  - FRACTURE [None]
  - HEART RATE INCREASED [None]
  - JOINT ARTHROPLASTY [None]
  - JOINT DISLOCATION [None]
  - JOINT INJURY [None]
  - KNEE ARTHROPLASTY [None]
  - LIGAMENT RUPTURE [None]
  - LIMB INJURY [None]
  - MULTIPLE INJURIES [None]
  - NERVOUSNESS [None]
  - SURGICAL FAILURE [None]
  - THYROID DISORDER [None]
  - WEIGHT DECREASED [None]
  - WEIGHT INCREASED [None]
